FAERS Safety Report 7314923-7 (Version None)
Quarter: 2011Q1

REPORT INFORMATION
  Report Type: 
  Country: None (occurrence: None)
  Receive Date: 20110225
  Receipt Date: 20100225
  Transmission Date: 20110831
  Serious: No
  Sender: FDA-Public Use
  Company Number: -MYLANLABS-2010S1001860

PATIENT
  Age: 17 Year
  Sex: Male
  Weight: 79.38 kg

DRUGS (2)
  1. AMNESTEEM [Suspect]
     Route: 048
     Dates: start: 20100109, end: 20100110
  2. AMNESTEEM [Suspect]
     Indication: ACNE
     Route: 048
     Dates: start: 20091230, end: 20100108

REACTIONS (2)
  - DRY SKIN [None]
  - FACIAL PAIN [None]
